FAERS Safety Report 4899542-4 (Version None)
Quarter: 2006Q1

REPORT INFORMATION
  Report Type: 
  Country: None (occurrence: None)
  Receive Date: 20060131
  Receipt Date: 20060119
  Transmission Date: 20060701
  Serious: Yes (Death)
  Sender: FDA-Public Use
  Company Number: 2006RR-01514

PATIENT
  Age: 55 Year
  Sex: Male
  Weight: 86.3 kg

DRUGS (4)
  1. METFORMIN HYDROCHLORIDE [Suspect]
     Dosage: 4 TABLETS; ORAL
     Route: 048
     Dates: start: 20050401
  2. ENALAPRIL MALEATE TABLET 20MG [Concomitant]
  3. BENDROFLUAZIDE [Concomitant]
  4. ROSIGLITAZONE [Concomitant]

REACTIONS (2)
  - MYOCARDIAL INFARCTION [None]
  - SUDDEN CARDIAC DEATH [None]
